FAERS Safety Report 7792430-5 (Version None)
Quarter: 2011Q4

REPORT INFORMATION
  Report Type: 
  Country: None (occurrence: None)
  Receive Date: 20111003
  Receipt Date: 20110927
  Transmission Date: 20120403
  Serious: Yes (Life-Threatening)
  Sender: FDA-Public Use
  Company Number: FR-ASTRAZENECA-2011SE58017

PATIENT
  Age: 63 Year
  Sex: Male

DRUGS (4)
  1. XYLOCAINE [Suspect]
     Route: 042
     Dates: start: 20110819, end: 20110819
  2. CELOCURINE [Suspect]
     Route: 065
     Dates: start: 20110819, end: 20110819
  3. PROPOFOL [Suspect]
     Route: 042
     Dates: start: 20110819, end: 20110819
  4. ATROPINE [Suspect]
     Route: 042
     Dates: start: 20110819, end: 20110819

REACTIONS (1)
  - SHOCK [None]
